FAERS Safety Report 7654308-7 (Version None)
Quarter: 2011Q3

REPORT INFORMATION
  Report Type: 
  Country: None (occurrence: None)
  Receive Date: 20110728
  Receipt Date: 20110712
  Transmission Date: 20111222
  Serious: Yes (Other)
  Sender: FDA-Public Use
  Company Number: AUR-APL-2011-04292

PATIENT
  Age: 61 Year
  Sex: Female

DRUGS (5)
  1. MIRTAZAPINE [Suspect]
     Indication: PRODUCT USED FOR UNKNOWN INDICATION
     Dosage: 45 MG (45 MG,1 IN 1 D)
  2. QUETIAPINE FUMARATE [Concomitant]
  3. LYRICA [Suspect]
     Indication: PRODUCT USED FOR UNKNOWN INDICATION
     Dosage: 150 MG (50 MG, 3 IN 1 D)
  4. ZOPICLONE (ZOPICLONE) [Concomitant]
  5. LORAZEPAM [Concomitant]

REACTIONS (3)
  - HEPATIC STEATOSIS [None]
  - JOINT SWELLING [None]
  - OEDEMA PERIPHERAL [None]
